FAERS Safety Report 10264471 (Version 1)
Quarter: 2014Q2

REPORT INFORMATION
  Report Type: Spontaneous
  Country: US (occurrence: None)
  Receive Date: 20140625
  Receipt Date: 20140625
  Transmission Date: 20141212
  Serious: Yes (Life-Threatening)
  Sender: FDA-Public Use
  Company Number: None

PATIENT
  Age: 54 Year
  Sex: Female

DRUGS (1)
  1. REXALL ENEMA [Suspect]
     Dates: start: 20140618, end: 20140618

REACTIONS (6)
  - Anorectal discomfort [None]
  - Genital burning sensation [None]
  - Anorectal discomfort [None]
  - Genital pain [None]
  - Proctalgia [None]
  - Proctalgia [None]
